FAERS Safety Report 9742709 (Version 2)
Quarter: 2015Q3

REPORT INFORMATION
  Report Type: Spontaneous
  Country: US (occurrence: US)
  Receive Date: 20131210
  Receipt Date: 20150805
  Transmission Date: 20151125
  Serious: No
  Sender: FDA-Public Use
  Company Number: US-GILEAD-2009-0025799

PATIENT
  Age: 76 Year
  Sex: Male
  Weight: 83.91 kg

DRUGS (20)
  1. IPRATROPIUM [Concomitant]
     Active Substance: IPRATROPIUM
  2. FINASTERIDE. [Concomitant]
     Active Substance: FINASTERIDE
  3. FEXOFENADINE [Concomitant]
     Active Substance: FEXOFENADINE\FEXOFENADINE HYDROCHLORIDE
  4. LIPITOR [Concomitant]
     Active Substance: ATORVASTATIN CALCIUM
  5. SIMVASTATIN. [Concomitant]
     Active Substance: SIMVASTATIN
  6. FLOMAX [Concomitant]
     Active Substance: TAMSULOSIN HYDROCHLORIDE
  7. POTASSIUM CHLORIDE. [Concomitant]
     Active Substance: POTASSIUM CHLORIDE
  8. ASPIRIN. [Concomitant]
     Active Substance: ASPIRIN
  9. FUROSEMIDE. [Concomitant]
     Active Substance: FUROSEMIDE
  10. JANUVIA [Concomitant]
     Active Substance: SITAGLIPTIN PHOSPHATE
  11. GLYBURIDE. [Concomitant]
     Active Substance: GLYBURIDE
  12. LEVOXYL [Concomitant]
     Active Substance: LEVOTHYROXINE SODIUM
  13. ZETIA [Concomitant]
     Active Substance: EZETIMIBE
  14. FISH OIL [Concomitant]
     Active Substance: FISH OIL
  15. ALLEGRA-D 12 HOUR [Concomitant]
  16. PREVACID [Concomitant]
     Active Substance: LANSOPRAZOLE
  17. ALBUTEROL. [Concomitant]
     Active Substance: ALBUTEROL
  18. LETAIRIS [Suspect]
     Active Substance: AMBRISENTAN
     Indication: PULMONARY ARTERIAL HYPERTENSION
     Route: 048
     Dates: start: 20091007
  19. DIGOXIN. [Concomitant]
     Active Substance: DIGOXIN
  20. METOPROLOL [Concomitant]
     Active Substance: METOPROLOL

REACTIONS (2)
  - Blood pressure decreased [Unknown]
  - No therapeutic response [Unknown]
